FAERS Safety Report 25051410 (Version 1)
Quarter: 2025Q1

REPORT INFORMATION
  Report Type: Report from Study
  Country: US (occurrence: US)
  Receive Date: 20250307
  Receipt Date: 20250307
  Transmission Date: 20250409
  Serious: No
  Sender: ACADIA PHARMACEUTICALS
  Company Number: US-ACADIA PHARMACEUTICALS INC.-ACA-2025-PIM-002304

PATIENT
  Age: 65 Year
  Sex: Male

DRUGS (17)
  1. NUPLAZID [Suspect]
     Active Substance: PIMAVANSERIN TARTRATE
     Indication: Parkinson^s disease psychosis
     Dosage: 34 MILLIGRAM, QD
     Route: 048
     Dates: start: 20230503
  2. CARBIDOPA\LEVODOPA [Concomitant]
     Active Substance: CARBIDOPA\LEVODOPA
  3. CHOLECALCIFEROL [Concomitant]
     Active Substance: CHOLECALCIFEROL
  4. CYANOCOBALAMIN [Concomitant]
     Active Substance: CYANOCOBALAMIN
  5. DONEPEZIL [Concomitant]
     Active Substance: DONEPEZIL
  6. FLUOROURACIL [Concomitant]
     Active Substance: FLUOROURACIL
     Route: 061
  7. HUMIRA [Concomitant]
     Active Substance: ADALIMUMAB
  8. LEVETIRACETAM [Concomitant]
     Active Substance: LEVETIRACETAM
  9. MIDODRINE [Concomitant]
     Active Substance: MIDODRINE
  10. MULTIVIT [VITAMINS NOS] [Concomitant]
  11. NAPROXEN [Concomitant]
     Active Substance: NAPROXEN
  12. PEG 3350 [Concomitant]
     Active Substance: POLYETHYLENE GLYCOL 3350
  13. ROPINIROLE [Concomitant]
     Active Substance: ROPINIROLE
  14. ROSUVASTATIN [Concomitant]
     Active Substance: ROSUVASTATIN
  15. SERTRALINE [Concomitant]
     Active Substance: SERTRALINE HYDROCHLORIDE
  16. TRAMADOL [Concomitant]
     Active Substance: TRAMADOL
  17. TRIAMCINOLONE ACETONIDE [Concomitant]
     Active Substance: TRIAMCINOLONE ACETONIDE
     Route: 061

REACTIONS (2)
  - Gait disturbance [Recovered/Resolved]
  - Fall [Recovered/Resolved]

NARRATIVE: CASE EVENT DATE: 20250213
